FAERS Safety Report 13251300 (Version 3)
Quarter: 2017Q2

REPORT INFORMATION
  Report Type: Other
  Country: IT (occurrence: IT)
  Receive Date: 20170220
  Receipt Date: 20170425
  Transmission Date: 20170830
  Serious: Yes (Other)
  Sender: FDA-Public Use
  Company Number: IT-VELOXIS PHARMACEUTICALS-1063319

PATIENT
  Age: 65 Year

DRUGS (4)
  1. MYCOPHENOLATE MOFETIL. [Suspect]
     Active Substance: MYCOPHENOLATE MOFETIL
  2. INTERLEUKIN-2 [Suspect]
     Active Substance: ALDESLEUKIN
  3. ENVARSUS XR [Suspect]
     Active Substance: TACROLIMUS
     Indication: IMMUNOSUPPRESSANT DRUG THERAPY
  4. STEROIDS [Suspect]
     Active Substance: UNSPECIFIED INGREDIENT

REACTIONS (1)
  - Biliary anastomosis complication [Recovered/Resolved]
